FAERS Safety Report 10110477 (Version 2)
Quarter: 2014Q2

REPORT INFORMATION
  Report Type: Spontaneous
  Country: JP (occurrence: JP)
  Receive Date: 20140425
  Receipt Date: 20140425
  Transmission Date: 20141212
  Serious: Yes (Death)
  Sender: FDA-Public Use
  Company Number: PHHY2014JP046542

PATIENT
  Age: 80 Year
  Sex: Male

DRUGS (2)
  1. NEORAL [Suspect]
     Indication: INTERSTITIAL LUNG DISEASE
     Dosage: 50 MG, BID
     Route: 048
     Dates: start: 20140208, end: 20140324
  2. NEORAL [Suspect]
     Indication: OFF LABEL USE

REACTIONS (3)
  - Interstitial lung disease [Fatal]
  - Renal disorder [Unknown]
  - Immunosuppressant drug level decreased [Unknown]
